FAERS Safety Report 7210548-2 (Version None)
Quarter: 2011Q1

REPORT INFORMATION
  Report Type: 
  Country: None (occurrence: None)
  Receive Date: 20110105
  Receipt Date: 20101227
  Transmission Date: 20110831
  Serious: Yes (Other)
  Sender: FDA-Public Use
  Company Number: IT-ROCHE-751180

PATIENT
  Sex: Female

DRUGS (2)
  1. CAPECITABINE [Suspect]
     Route: 048
  2. RIDAFOROLIMUS [Suspect]
     Route: 042

REACTIONS (1)
  - COMPLEX REGIONAL PAIN SYNDROME [None]
